FAERS Safety Report 9435431 (Version 3)
Quarter: 2014Q3

REPORT INFORMATION
  Report Type: Spontaneous
  Country: US (occurrence: US)
  Receive Date: 20130801
  Receipt Date: 20140924
  Transmission Date: 20150326
  Serious: Yes (Other)
  Sender: FDA-Public Use
  Company Number: US-BAYER-2013-093325

PATIENT
  Age: 25 Year
  Sex: Female
  Weight: 61.22 kg

DRUGS (2)
  1. MIRENA [Suspect]
     Active Substance: LEVONORGESTREL
     Indication: CONTRACEPTION
     Dosage: 20 MCG/24HR, CONT
     Dates: start: 2009, end: 2010
  2. MIRENA [Suspect]
     Active Substance: LEVONORGESTREL
     Indication: CONTRACEPTION
     Dosage: 20 MCG/24HR, CONT
     Route: 015
     Dates: start: 2010, end: 20120227

REACTIONS (13)
  - Infertility female [None]
  - Pelvic inflammatory disease [None]
  - Genital haemorrhage [None]
  - Malaise [None]
  - Menorrhagia [None]
  - Endometriosis [None]
  - Vaginal infection [None]
  - Pain [None]
  - Depression [None]
  - Vaginal discharge [None]
  - Mobility decreased [None]
  - Uterine infection [None]
  - Anxiety [None]

NARRATIVE: CASE EVENT DATE: 2010
